FAERS Safety Report 5294723-2 (Version None)
Quarter: 2007Q2

REPORT INFORMATION
  Report Type: 
  Country: None (occurrence: None)
  Receive Date: 20070406
  Receipt Date: 20070323
  Transmission Date: 20071010
  Serious: Yes (Other)
  Sender: FDA-Public Use
  Company Number: SPV1-2007-01613

PATIENT
  Age: 15 Year
  Sex: Male
  Weight: 44.4 kg

DRUGS (1)
  1. ADDERALL XR(AMPHETAMINE ASPARTATE, AMPHETAMINE SULFATE, DEXTROAMPHETAM [Suspect]
     Indication: ATTENTION DEFICIT/HYPERACTIVITY DISORDER
     Dosage: 25 MG, 1X/DAY:  QD, ORAL
     Route: 048
     Dates: start: 20050101, end: 20070303

REACTIONS (4)
  - ANOREXIA [None]
  - DIZZINESS [None]
  - FALL [None]
  - LOSS OF CONSCIOUSNESS [None]
